FAERS Safety Report 12841657 (Version 1)
Quarter: 2016Q4

REPORT INFORMATION
  Report Type: Spontaneous
  Country: US (occurrence: US)
  Receive Date: 20161012
  Receipt Date: 20161012
  Transmission Date: 20170207
  Serious: Yes (Disabling, Other)
  Sender: FDA-Public Use
  Company Number: US-SAOL THERAPEUTICS-2016SAO00691

PATIENT
  Age: 50 Year
  Sex: Female

DRUGS (6)
  1. BACLOFEN. [Suspect]
     Active Substance: BACLOFEN
     Indication: PAIN
     Dosage: 199.7 ?G, \DAY
     Route: 037
  2. FENTANYL. [Suspect]
     Active Substance: FENTANYL
     Indication: BACK PAIN
  3. CLONIDINE. [Suspect]
     Active Substance: CLONIDINE
     Indication: BACK PAIN
  4. CLONIDINE. [Suspect]
     Active Substance: CLONIDINE
     Indication: PAIN
     Dosage: 44.94 ?G, \DAY
     Route: 037
  5. BACLOFEN. [Suspect]
     Active Substance: BACLOFEN
     Indication: BACK PAIN
  6. FENTANYL. [Suspect]
     Active Substance: FENTANYL
     Indication: PAIN
     Dosage: 299.6 ?G, \DAY
     Route: 037

REACTIONS (4)
  - Fall [Unknown]
  - Off label use [Unknown]
  - Neurological complication associated with device [Not Recovered/Not Resolved]
  - Sciatica [Unknown]

NARRATIVE: CASE EVENT DATE: 201608
